FAERS Safety Report 4377355-X (Version None)
Quarter: 2004Q2

REPORT INFORMATION
  Report Type: 
  Country: None (occurrence: None)
  Receive Date: 20040609
  Receipt Date: 20030331
  Transmission Date: 20050107
  Serious: No
  Sender: FDA-Public Use
  Company Number: 2004207563US

PATIENT
  Age: 51 Year
  Sex: Female

DRUGS (3)
  1. BEXTRA [Suspect]
     Indication: INFLAMMATION LOCALISED
     Dosage: 10 MG QD
     Dates: start: 20040330
  2. MULTIVITAMIN [Concomitant]
  3. ZANTAC [Concomitant]

REACTIONS (3)
  - CHEST DISCOMFORT [None]
  - ERUCTATION [None]
  - GLOSSODYNIA [None]
